FAERS Safety Report 7502094-3 (Version None)
Quarter: 2011Q2

REPORT INFORMATION
  Report Type: 
  Country: None (occurrence: None)
  Receive Date: 20110525
  Receipt Date: 20110418
  Transmission Date: 20111010
  Serious: No
  Sender: FDA-Public Use
  Company Number: A0924257A

PATIENT
  Age: 72 Year
  Sex: Female
  Weight: 55.5 kg

DRUGS (8)
  1. VENTOLIN [Suspect]
     Indication: ASTHMA
     Dosage: 2PUFF FOUR TIMES PER DAY
     Route: 055
     Dates: start: 20110318, end: 20110324
  2. VITAMINS [Concomitant]
  3. CALCIUM CARBONATE [Concomitant]
  4. TRAZODONE HCL [Concomitant]
     Indication: INSOMNIA
  5. XANAX [Concomitant]
     Indication: INSOMNIA
  6. DEXLANSOPRAZOLE [Suspect]
     Dosage: 60MG SEE DOSAGE TEXT
     Route: 048
     Dates: start: 20110307, end: 20110321
  7. FLOVENT [Concomitant]
     Indication: ASTHMA
     Dates: start: 20110323
  8. ZYRTEC [Concomitant]
     Indication: MULTIPLE ALLERGIES

REACTIONS (2)
  - DIARRHOEA [None]
  - WEIGHT DECREASED [None]
